FAERS Safety Report 8251339-3 (Version None)
Quarter: 2012Q2

REPORT INFORMATION
  Report Type: 
  Country: None (occurrence: None)
  Receive Date: 20120402
  Receipt Date: 20120329
  Transmission Date: 20120825
  Serious: Yes (Hospitalization, Other)
  Sender: FDA-Public Use
  Company Number: GB-GLAXOSMITHKLINE-B0652216A

PATIENT
  Sex: Female
  Weight: 62 kg

DRUGS (8)
  1. CHLORAMBUCIL [Suspect]
     Indication: CHRONIC LYMPHOCYTIC LEUKAEMIA
     Dosage: 16MG CYCLIC
     Route: 048
     Dates: start: 20091105, end: 20091207
  2. CALCIUM CARBONATE [Concomitant]
     Dates: start: 20070101
  3. BETAHISTINE [Concomitant]
  4. RITUXIMAB [Suspect]
     Indication: CHRONIC LYMPHOCYTIC LEUKAEMIA
     Route: 042
     Dates: start: 20091105, end: 20091207
  5. MORPHINE [Concomitant]
     Dosage: 20MG PER DAY
     Dates: start: 20070101
  6. OMEPRAZOLE [Concomitant]
     Dosage: 20MG PER DAY
     Dates: start: 20070101
  7. FYBOGEL [Concomitant]
     Dosage: 1SAC PER DAY
     Dates: start: 20070101
  8. ASPIRIN [Concomitant]
     Dosage: 75MG PER DAY
     Dates: start: 20070101

REACTIONS (2)
  - SYNCOPE [None]
  - NAUSEA [None]
